FAERS Safety Report 6464790-9 (Version None)
Quarter: 2009Q4

REPORT INFORMATION
  Report Type: 
  Country: None (occurrence: None)
  Receive Date: 20091201
  Receipt Date: 20091119
  Transmission Date: 20100525
  Serious: Yes (Hospitalization)
  Sender: FDA-Public Use
  Company Number: PHHY2009AU48610

PATIENT
  Sex: Male

DRUGS (2)
  1. CLOZARIL [Suspect]
     Indication: SCHIZOPHRENIA
     Dosage: 650 MG, UNK
     Dates: start: 19930517
  2. CLOZARIL [Suspect]
     Dosage: 600 MG, UNK

REACTIONS (6)
  - BLADDER OBSTRUCTION [None]
  - CARDIAC TAMPONADE [None]
  - DYSPNOEA [None]
  - INCONTINENCE [None]
  - PERICARDITIS [None]
  - PNEUMONIA [None]
